FAERS Safety Report 7027628-7 (Version None)
Quarter: 2010Q4

REPORT INFORMATION
  Report Type: 
  Country: None (occurrence: None)
  Receive Date: 20101004
  Receipt Date: 20100927
  Transmission Date: 20110411
  Serious: Yes (Other)
  Sender: FDA-Public Use
  Company Number: NL-ABBOTT-10P-114-0639309-00

PATIENT
  Sex: Male
  Weight: 80 kg

DRUGS (8)
  1. LEUPROLIDE ACETATE [Suspect]
     Indication: PROSTATE CANCER
     Route: 058
     Dates: start: 20060710
  2. TRAMADOL HCL [Concomitant]
     Indication: PRODUCT USED FOR UNKNOWN INDICATION
     Route: 048
  3. SIMVASTATIN [Concomitant]
     Indication: BLOOD CHOLESTEROL INCREASED
     Route: 048
     Dates: start: 20090101
  4. NOVOMIX [Concomitant]
     Indication: TYPE 1 DIABETES MELLITUS
     Dosage: ACCORDING TO PRESCRIPTION
     Route: 058
     Dates: start: 19850101
  5. IPRATROPIUM BROMIDE [Concomitant]
     Indication: DYSPNOEA
     Dosage: 1 TO 2 TIMES DAILY
     Route: 055
     Dates: start: 19980101
  6. MACROGEL/SALTS POWDER FOR DRINK (MOVIC/MALOX/LAXT) [Concomitant]
     Indication: CONSTIPATION
     Route: 048
     Dates: start: 20030101
  7. PARACETAMOL [Concomitant]
     Indication: MUSCULOSKELETAL PAIN
     Route: 048
  8. PARACETAMOL [Concomitant]
     Indication: PAIN IN EXTREMITY

REACTIONS (4)
  - CLAVICLE FRACTURE [None]
  - CONTUSION [None]
  - HOT FLUSH [None]
  - ROAD TRAFFIC ACCIDENT [None]
